FAERS Safety Report 20611892 (Version 3)
Quarter: 2022Q3

REPORT INFORMATION
  Report Type: Report from Study
  Country: FR (occurrence: FR)
  Receive Date: 20220318
  Receipt Date: 20220711
  Transmission Date: 20221027
  Serious: Yes (Hospitalization, Other)
  Sender: FDA-Public Use
  Company Number: FR-BoehringerIngelheim-2022-BI-159091

PATIENT
  Age: 63 Year
  Sex: Male
  Weight: 95 kg

DRUGS (1)
  1. NINTEDANIB [Suspect]
     Active Substance: NINTEDANIB
     Indication: Interstitial lung disease
     Route: 048
     Dates: start: 20211124, end: 20220308

REACTIONS (2)
  - Pulmonary embolism [Recovered/Resolved]
  - Phlebitis [Recovered/Resolved]

NARRATIVE: CASE EVENT DATE: 20220308
